FAERS Safety Report 5051747-8 (Version None)
Quarter: 2006Q3

REPORT INFORMATION
  Report Type: 
  Country: None (occurrence: None)
  Receive Date: 20060712
  Receipt Date: 20060712
  Transmission Date: 20061208
  Serious: No
  Sender: FDA-Public Use
  Company Number: None

PATIENT
  Age: 52 Year
  Sex: Female

DRUGS (1)
  1. ENBREL [Suspect]
     Dosage: 25 MG TWICE WEEKLY SUBQ
     Route: 058

REACTIONS (1)
  - POSTMENOPAUSAL HAEMORRHAGE [None]
